FAERS Safety Report 8327988-0 (Version None)
Quarter: 2012Q2

REPORT INFORMATION
  Report Type: 
  Country: None (occurrence: None)
  Receive Date: 20120502
  Receipt Date: 20120423
  Transmission Date: 20120825
  Serious: Yes (Hospitalization, Other)
  Sender: FDA-Public Use
  Company Number: US-BAYER-2011-118945

PATIENT
  Age: 34 Year
  Sex: Female
  Weight: 68.027 kg

DRUGS (12)
  1. DROSPIRENONE AND ETHINYL ESTRADIOL [Suspect]
     Indication: PREMENSTRUAL SYNDROME
     Dosage: UNK
     Dates: start: 20090701, end: 20091201
  2. DROSPIRENONE AND ETHINYL ESTRADIOL [Suspect]
  3. ALPRAZOLAM [Concomitant]
     Dosage: ? TO 1 TAB, HS
     Dates: start: 20090521, end: 20100116
  4. YAZ [Suspect]
     Indication: PREMENSTRUAL SYNDROME
     Dosage: UNK
     Dates: start: 20090401, end: 20090701
  5. DARVOCET-N 50 [Concomitant]
  6. BUPROPION HYDROCHLORIDE [Concomitant]
     Dosage: 1 TAB EVERY DAY
     Route: 048
     Dates: start: 20090720, end: 20101010
  7. YASMIN [Suspect]
     Indication: PREMENSTRUAL SYNDROME
     Dosage: UNK
     Dates: start: 20090401, end: 20090701
  8. YAZ [Suspect]
  9. VALTREX [Concomitant]
     Dosage: 1 TAB EVERY DAY
     Route: 048
     Dates: start: 20081219, end: 20090116
  10. WELLBUTRIN XL [Concomitant]
  11. YASMIN [Suspect]
  12. MOTRIN [Concomitant]
     Dosage: UNK
     Route: 048

REACTIONS (12)
  - PANCREATITIS [None]
  - DEPRESSION [None]
  - GALLBLADDER DISORDER [None]
  - PAIN [None]
  - NAUSEA [None]
  - STRESS [None]
  - ANXIETY [None]
  - MENTAL DISORDER [None]
  - WEIGHT DECREASED [None]
  - ABDOMINAL PAIN UPPER [None]
  - PLEURAL EFFUSION [None]
  - DIARRHOEA [None]
